FAERS Safety Report 23522255 (Version 2)
Quarter: 2024Q1

REPORT INFORMATION
  Report Type: Spontaneous
  Country: FR (occurrence: FR)
  Receive Date: 20240214
  Receipt Date: 20240215
  Transmission Date: 20240409
  Serious: Yes (Death, Other)
  Sender: FDA-Public Use
  Company Number: None

PATIENT
  Sex: Female

DRUGS (2)
  1. ADALIMUMAB [Suspect]
     Active Substance: ADALIMUMAB\ISOPROPYL ALCOHOL
     Indication: Uveitis
     Dosage: UNK
     Route: 065
  2. PREDNISONE [Concomitant]
     Active Substance: PREDNISONE
     Indication: Product used for unknown indication
     Dosage: UNK
     Route: 065

REACTIONS (12)
  - Foetal death [Fatal]
  - Pre-eclampsia [Unknown]
  - Gestational diabetes [Unknown]
  - Behcet^s syndrome [Unknown]
  - Ocular sarcoidosis [Unknown]
  - Vogt-Koyanagi-Harada disease [Unknown]
  - Uveitis [Unknown]
  - Choroiditis [Unknown]
  - Maternal exposure during pregnancy [Unknown]
  - Autoinflammatory disease [Unknown]
  - Threatened labour [Unknown]
  - Hypertension [Unknown]
